FAERS Safety Report 9380088 (Version 1)
Quarter: 2013Q3

REPORT INFORMATION
  Report Type: Spontaneous
  Country: US (occurrence: None)
  Receive Date: 20130701
  Receipt Date: 20130701
  Transmission Date: 20140515
  Serious: No
  Sender: FDA-Public Use
  Company Number: None

PATIENT
  Age: 63 Year
  Sex: Female

DRUGS (1)
  1. STIVARGA 40 MG BAYER [Suspect]
     Indication: COLON CANCER
     Dosage: 3 TABLETS DAILY
     Route: 048
     Dates: start: 201301, end: 201306

REACTIONS (2)
  - Blister [None]
  - Neoplasm [None]
